FAERS Safety Report 13162462 (Version 4)
Quarter: 2018Q2

REPORT INFORMATION
  Report Type: Report from Study
  Country: FR (occurrence: FR)
  Receive Date: 20170130
  Receipt Date: 20180604
  Transmission Date: 20180711
  Serious: Yes (Death, Hospitalization, Other)
  Sender: FDA-Public Use
  Company Number: FR-BRISTOL-MYERS SQUIBB COMPANY-BMS-2017-005914

PATIENT
  Age: 74 Year
  Sex: Female

DRUGS (1)
  1. NIVOLUMAB [Suspect]
     Active Substance: NIVOLUMAB
     Indication: EPITHELIOID MESOTHELIOMA
     Dosage: 3 MG/KG, UNK
     Route: 042
     Dates: start: 20160620, end: 20161108

REACTIONS (5)
  - General physical health deterioration [Unknown]
  - Oesophageal fistula [Not Recovered/Not Resolved]
  - Hyperglycaemia [Unknown]
  - Hypokalaemia [Unknown]
  - Mediastinal abscess [Fatal]

NARRATIVE: CASE EVENT DATE: 20161121
